FAERS Safety Report 7634459-3 (Version None)
Quarter: 2011Q3

REPORT INFORMATION
  Report Type: 
  Country: None (occurrence: None)
  Receive Date: 20110725
  Receipt Date: 20110719
  Transmission Date: 20111222
  Serious: Yes (Life-Threatening)
  Sender: FDA-Public Use
  Company Number: PHHY2011US54567

PATIENT
  Sex: Female

DRUGS (8)
  1. LIPITOR [Concomitant]
     Dosage: UNK UKN, UNK
  2. CENTRUM [Concomitant]
     Dosage: UNK UKN, UNK
  3. SYNTHROID [Concomitant]
     Dosage: UNK UKN, UNK
  4. AMLODIPINE [Concomitant]
     Dosage: UNK UKN, UNK
  5. RECLAST [Suspect]
     Indication: OSTEITIS DEFORMANS
     Dosage: 5 MG/100 ML, ONCE IN YEAR
     Route: 042
     Dates: start: 20110601
  6. CALCIUM CARBONATE [Concomitant]
     Dosage: UNK UKN, UNK
  7. PREVACID [Concomitant]
     Dosage: UNK UKN, UNK
  8. VITAMIN D [Concomitant]
     Dosage: UNK UKN, UNK

REACTIONS (9)
  - DYSPNOEA [None]
  - ARTHRALGIA [None]
  - INFLUENZA LIKE ILLNESS [None]
  - CHILLS [None]
  - MYALGIA [None]
  - GAIT DISTURBANCE [None]
  - FEELING ABNORMAL [None]
  - HEADACHE [None]
  - BONE PAIN [None]
